FAERS Safety Report 19122482 (Version 1)
Quarter: 2021Q2

REPORT INFORMATION
  Report Type: Spontaneous
  Country: US (occurrence: US)
  Receive Date: 20210412
  Receipt Date: 20210412
  Transmission Date: 20210717
  Serious: Yes (Other)
  Sender: FDA-Public Use
  Company Number: US-PFIZER INC-2021355514

PATIENT
  Age: 15 Year
  Sex: Male

DRUGS (3)
  1. METHYLPREDNISOLONE ACETATE. [Suspect]
     Active Substance: METHYLPREDNISOLONE ACETATE
     Indication: ENCEPHALITIS AUTOIMMUNE
     Dosage: UNK, MONTHLY
  2. IMMUNOGLOBULIN HUMAN NORMAL [Suspect]
     Active Substance: HUMAN IMMUNOGLOBULIN G
     Indication: ENCEPHALITIS AUTOIMMUNE
     Dosage: UNK
     Route: 042
  3. RITUXIMAB. [Suspect]
     Active Substance: RITUXIMAB
     Indication: ENCEPHALITIS AUTOIMMUNE
     Dosage: UNK, EVERY 6 MONTHS (INFUSIONS)

REACTIONS (3)
  - Psychiatric symptom [Recovering/Resolving]
  - Hallucination, auditory [Recovering/Resolving]
  - Suicidal ideation [Recovering/Resolving]
